FAERS Safety Report 12520350 (Version 3)
Quarter: 2016Q3

REPORT INFORMATION
  Report Type: Spontaneous
  Country: JP (occurrence: JP)
  Receive Date: 20160701
  Receipt Date: 20160728
  Transmission Date: 20161109
  Serious: No
  Sender: FDA-Public Use
  Company Number: JP-009507513-1606JPN012246

PATIENT
  Age: 70 Year
  Sex: Male

DRUGS (8)
  1. BIOFERMIN (BACILLUS SUBTILIS (+) LACTOBACILLUS ACIDOPHILUS (+) STREPTO [Concomitant]
     Active Substance: BACILLUS SUBTILIS\LACTOBACILLUS ACIDOPHILUS\STREPTOCOCCUS FAECAIS
     Dosage: DAILY DOSAGE UNKNOWN, AFTER EACH MEAL
     Route: 048
  2. BELSOMRA [Suspect]
     Active Substance: SUVOREXANT
     Indication: INSOMNIA
     Dosage: 15 MG, QD
     Route: 048
     Dates: start: 20160518
  3. GOREI-SAN [Suspect]
     Active Substance: HERBALS
     Dosage: 2.5 G, TID (BEFORE EACH MEAL)
     Route: 048
     Dates: end: 201606
  4. JUZEN-TAIHO-TO [Suspect]
     Active Substance: UNSPECIFIED INGREDIENT
     Dosage: 2.5 G, TID, BEFORE EACH MEAL
     Route: 048
     Dates: end: 201606
  5. TERNELIN [Concomitant]
     Active Substance: TIZANIDINE
     Dosage: 1 MG, TID (AFTER EACH MEAL)
     Route: 048
  6. NEUROTROPIN [Concomitant]
     Active Substance: NEUROTROPIN
     Dosage: 4 DF, BID (AFTER THE MEALS IN THE MORNING AND EVENING)
     Route: 048
  7. MUCOSOLVAN [Concomitant]
     Active Substance: AMBROXOL HYDROCHLORIDE
     Dosage: 15 MG, TID (AFTER EACH MEAL)
     Route: 048
  8. MUCODYNE [Concomitant]
     Active Substance: CARBOCYSTEINE
     Dosage: 250 MG, TID (AFTER EACH MEAL)
     Route: 048

REACTIONS (1)
  - Hepatic function abnormal [Unknown]

NARRATIVE: CASE EVENT DATE: 20160620
